FAERS Safety Report 7082766-8 (Version None)
Quarter: 2010Q4

REPORT INFORMATION
  Report Type: 
  Country: None (occurrence: None)
  Receive Date: 20101104
  Receipt Date: 20101026
  Transmission Date: 20110411
  Serious: Yes (Hospitalization)
  Sender: FDA-Public Use
  Company Number: FR-BRISTOL-MYERS SQUIBB COMPANY-15364185

PATIENT
  Age: 52 Year
  Sex: Male

DRUGS (12)
  1. GLUCOPHAGE [Suspect]
     Dosage: 2550MG;THERAPY FROM YEARS TO 16AUG10
     Route: 048
     Dates: end: 20100816
  2. ATACAND [Suspect]
     Dosage: 2DF;ATACAND 8MG TABS
     Route: 048
     Dates: start: 20100811, end: 20100816
  3. CIPROFLOXACIN HCL [Suspect]
     Dosage: 1 DF,750 MG TABLET
     Route: 048
     Dates: start: 20100811, end: 20100816
  4. ATARAX [Concomitant]
  5. AMLODIPINE [Concomitant]
  6. LANTUS [Concomitant]
  7. TAHOR [Concomitant]
  8. ACETAMINOPHEN [Concomitant]
  9. LOVENOX [Concomitant]
  10. MORPHINE [Concomitant]
  11. KARDEGIC [Concomitant]
  12. EMLA [Concomitant]

REACTIONS (7)
  - ANGIODERMATITIS [None]
  - CONDITION AGGRAVATED [None]
  - GOUT [None]
  - HYPERURICAEMIA [None]
  - RENAL FAILURE [None]
  - RENAL FAILURE ACUTE [None]
  - SKIN NECROSIS [None]
